FAERS Safety Report 6864901-7 (Version None)
Quarter: 2010Q3

REPORT INFORMATION
  Report Type: 
  Country: None (occurrence: None)
  Receive Date: 20100721
  Receipt Date: 20080403
  Transmission Date: 20110219
  Serious: No
  Sender: FDA-Public Use
  Company Number: US-PFIZER INC-2008033742

PATIENT
  Sex: Male
  Weight: 68 kg

DRUGS (6)
  1. CHANTIX [Suspect]
     Indication: SMOKING CESSATION THERAPY
     Dates: start: 20080324
  2. HYDROCODONE [Concomitant]
  3. LORAZEPAM [Concomitant]
  4. GABAPENTIN [Concomitant]
  5. PAXIL [Concomitant]
  6. ANTIEMETICS AND ANTINAUSEANTS [Concomitant]

REACTIONS (2)
  - FATIGUE [None]
  - VOMITING [None]
